FAERS Safety Report 4839023-7 (Version None)
Quarter: 2005Q4

REPORT INFORMATION
  Report Type: 
  Country: None (occurrence: None)
  Receive Date: 20051031
  Receipt Date: 20050822
  Transmission Date: 20060501
  Serious: No
  Sender: FDA-Public Use
  Company Number: 200516299US

PATIENT
  Age: 40 Year
  Sex: Male
  Weight: 86.3 kg

DRUGS (3)
  1. KETEK [Suspect]
     Indication: SINUSITIS
     Dosage: 400MG QD PO
     Route: 048
     Dates: start: 20050816, end: 20050817
  2. PREVACID [Concomitant]
  3. ALTACE [Concomitant]

REACTIONS (2)
  - VISION BLURRED [None]
  - VISUAL DISTURBANCE [None]
